FAERS Safety Report 9399269 (Version 1)
Quarter: 2013Q3

REPORT INFORMATION
  Report Type: Spontaneous
  Country: US (occurrence: None)
  Receive Date: 20130709
  Receipt Date: 20130709
  Transmission Date: 20140515
  Serious: Yes (Other)
  Sender: FDA-Public Use
  Company Number: 2013AP006387

PATIENT
  Age: 66 Year
  Sex: Male

DRUGS (3)
  1. FLUCONAZOLE [Suspect]
     Indication: PNEUMONIA CRYPTOCOCCAL
     Route: 048
  2. JAKAFI [Suspect]
     Indication: MYELOFIBROSIS
  3. PREDNISONE [Suspect]
     Indication: MYELOFIBROSIS

REACTIONS (4)
  - Thrombocytopenia [None]
  - Fatigue [None]
  - Drug interaction [None]
  - Pneumonia cryptococcal [None]
